FAERS Safety Report 6107502-0 (Version None)
Quarter: 2009Q1

REPORT INFORMATION
  Report Type: 
  Country: None (occurrence: None)
  Receive Date: 20090302
  Receipt Date: 20081029
  Transmission Date: 20090719
  Serious: Yes (Other)
  Sender: FDA-Public Use
  Company Number: 2008NI0263

PATIENT
  Age: 51 Year
  Sex: Male
  Weight: 90.7194 kg

DRUGS (10)
  1. NITROLINGUAL PUMPSPRAY [Suspect]
     Indication: ANGINA PECTORIS
     Dosage: 2 SPRAYS, PRN, SUBLINGUAL
     Route: 060
     Dates: start: 20081028, end: 20081029
  2. ISOSORBIDE [Concomitant]
  3. RANEXA [Concomitant]
  4. FELODOPINE [Concomitant]
  5. FENOFIBRATE [Concomitant]
  6. SIMVASTATIN [Concomitant]
  7. PLAVIX [Concomitant]
  8. FOLIC ACID [Concomitant]
  9. ASPIRIN [Concomitant]
  10. NITROGLYCERIN PILLS [Concomitant]

REACTIONS (1)
  - DRUG INEFFECTIVE [None]
